FAERS Safety Report 4646163-4 (Version None)
Quarter: 2005Q2

REPORT INFORMATION
  Report Type: 
  Country: None (occurrence: None)
  Receive Date: 20050422
  Receipt Date: 20050422
  Transmission Date: 20051028
  Serious: Yes (Other)
  Sender: FDA-Public Use
  Company Number: None

PATIENT
  Age: 65 Year
  Sex: Male
  Weight: 81.2 kg

DRUGS (12)
  1. METFORMIN [Suspect]
  2. GABAPENTIN [Concomitant]
  3. PENTOXIFYLLINE [Concomitant]
  4. SIMVASTATIN [Concomitant]
  5. ALBUTEROL SULFATE AND IPRATROPIUM BROMIDE [Concomitant]
  6. ROSIGLITAZONE MALEATE [Concomitant]
  7. ALBUTEROL [Concomitant]
  8. ACCU-CHEK COMFORT CURVE-H TEST STRIP [Concomitant]
  9. PREDNISONE TAB [Concomitant]
  10. CEFUROXIME AXETIL [Concomitant]
  11. GLYBURIDE [Concomitant]
  12. TRIAMCINOLONE [Concomitant]

REACTIONS (1)
  - DIARRHOEA [None]
